FAERS Safety Report 14375379 (Version 1)
Quarter: 2018Q1

REPORT INFORMATION
  Report Type: Spontaneous
  Country: GB (occurrence: GB)
  Receive Date: 20180111
  Receipt Date: 20180111
  Transmission Date: 20180509
  Serious: Yes (Other)
  Sender: FDA-Public Use
  Company Number: GB-GLAXOSMITHKLINE-GB2018002021

PATIENT
  Age: 72 Year
  Sex: Male
  Weight: 74 kg

DRUGS (1)
  1. MALARONE [Suspect]
     Active Substance: ATOVAQUONE\PROGUANIL HYDROCHLORIDE
     Indication: MALARIA PROPHYLAXIS
     Dosage: 250MG/100MG
     Route: 048
     Dates: start: 20171125, end: 20171209

REACTIONS (3)
  - Exercise tolerance decreased [Recovered/Resolved]
  - Heart rate increased [Unknown]
  - Dyspnoea exertional [Recovered/Resolved]
